FAERS Safety Report 10775792 (Version 1)
Quarter: 2015Q1

REPORT INFORMATION
  Report Type: Spontaneous
  Country: DE (occurrence: DE)
  Receive Date: 20150209
  Receipt Date: 20150209
  Transmission Date: 20150721
  Serious: Yes (Death)
  Sender: FDA-Public Use
  Company Number: DE-ABBVIE-14P-062-1319310-00

PATIENT
  Age: 73 Year
  Sex: Male
  Weight: 53 kg

DRUGS (1)
  1. DUODOPA [Suspect]
     Active Substance: CARBIDOPA\LEVODOPA
     Indication: PARKINSONISM
     Dosage: CRD: 4.3 ML/H FROM 7 TO 23 O^CLOCK; ED: 3 ML UP TO FOUR TIMES A DAY
     Route: 050
     Dates: start: 20090610

REACTIONS (1)
  - Myocardial infarction [Fatal]

NARRATIVE: CASE EVENT DATE: 20141205
